FAERS Safety Report 7031641-3 (Version None)
Quarter: 2010Q4

REPORT INFORMATION
  Report Type: 
  Country: None (occurrence: None)
  Receive Date: 20101006
  Receipt Date: 20101006
  Transmission Date: 20110411
  Serious: Yes (Life-Threatening)
  Sender: FDA-Public Use
  Company Number: None

PATIENT
  Age: 43 Year
  Sex: Female

DRUGS (2)
  1. ZIPSOR [Suspect]
     Indication: STEVENS-JOHNSON SYNDROME
     Dosage: 25 MG ONCE A DAY
     Dates: start: 20100809
  2. ZIPSOR [Suspect]
     Indication: STEVENS-JOHNSON SYNDROME
     Dosage: 25 MG ONCE A DAY
     Dates: start: 20100810

REACTIONS (3)
  - GAIT DISTURBANCE [None]
  - STEVENS-JOHNSON SYNDROME [None]
  - TOXIC EPIDERMAL NECROLYSIS [None]
